FAERS Safety Report 14221414 (Version 7)
Quarter: 2018Q1

REPORT INFORMATION
  Report Type: Spontaneous
  Country: US (occurrence: US)
  Receive Date: 20171124
  Receipt Date: 20180320
  Transmission Date: 20180508
  Serious: No
  Sender: FDA-Public Use
  Company Number: US-PFIZER INC-2017507142

PATIENT
  Age: 67 Year
  Sex: Female

DRUGS (1)
  1. XELJANZ XR [Suspect]
     Active Substance: TOFACITINIB CITRATE
     Dosage: 11 MG, UNK
     Dates: start: 201710

REACTIONS (14)
  - Drug dose omission [Unknown]
  - Nasal congestion [Unknown]
  - Influenza [Unknown]
  - Oropharyngeal pain [Unknown]
  - Upper-airway cough syndrome [Unknown]
  - Malaise [Unknown]
  - Haemorrhoidal haemorrhage [Unknown]
  - Pharyngitis [Unknown]
  - Nasopharyngitis [Unknown]
  - Tooth disorder [Unknown]
  - Tooth infection [Unknown]
  - Constipation [Unknown]
  - Rhinorrhoea [Unknown]
  - Bronchitis [Unknown]
